FAERS Safety Report 5226129-6 (Version None)
Quarter: 2007Q1

REPORT INFORMATION
  Report Type: 
  Country: None (occurrence: None)
  Receive Date: 20070201
  Receipt Date: 20070129
  Transmission Date: 20070707
  Serious: Yes (Hospitalization)
  Sender: FDA-Public Use
  Company Number: JP-JPN-A200700050

PATIENT
  Age: 79 Year
  Sex: Female

DRUGS (6)
  1. VALTREX [Suspect]
     Indication: HERPES ZOSTER
     Dosage: 1000MG THREE TIMES PER DAY
     Route: 048
     Dates: start: 20070105, end: 20070109
  2. MEVALOTIN [Concomitant]
     Dosage: 5MG PER DAY
     Route: 048
  3. RENIVACE [Concomitant]
     Dosage: 5MG PER DAY
     Route: 048
  4. NORVASC [Concomitant]
     Indication: HYPERTENSION
     Dosage: 2.5MG PER DAY
     Route: 048
  5. GLIMICRON [Concomitant]
     Indication: DIABETES MELLITUS
     Dosage: 40MG PER DAY
     Route: 048
  6. ASPIRIN [Concomitant]
     Indication: CEREBRAL INFARCTION
     Dosage: 100MG PER DAY
     Route: 048

REACTIONS (5)
  - GAIT DISTURBANCE [None]
  - NAUSEA [None]
  - PSYCHIATRIC SYMPTOM [None]
  - RENAL FAILURE ACUTE [None]
  - VOMITING [None]
